FAERS Safety Report 4481367-5 (Version None)
Quarter: 2004Q4

REPORT INFORMATION
  Report Type: 
  Country: None (occurrence: None)
  Receive Date: 20041021
  Receipt Date: 20041020
  Transmission Date: 20050328
  Serious: Yes (Life-Threatening, Hospitalization)
  Sender: FDA-Public Use
  Company Number: DE-GLAXOSMITHKLINE-D0044983A

PATIENT
  Age: 75 Year
  Sex: Female
  Weight: 67 kg

DRUGS (6)
  1. VIANI [Suspect]
     Dosage: 1PUFF TWICE PER DAY
     Route: 055
  2. METYPRED [Suspect]
     Dosage: 16MG PER DAY
     Route: 048
     Dates: start: 20040420, end: 20040511
  3. PREDNISOLONE [Suspect]
     Dosage: 10MG UNKNOWN
     Route: 048
     Dates: start: 20040601
  4. PREDNISOLONE [Suspect]
     Dosage: 10MG PER DAY
     Route: 042
     Dates: start: 20040511, end: 20040614
  5. EUPHYLONG [Concomitant]
     Dosage: 250MG TWICE PER DAY
     Route: 048
  6. SPIRIVA [Concomitant]
     Dosage: 18MCG PER DAY
     Route: 055

REACTIONS (5)
  - COUGH [None]
  - DYSPNOEA [None]
  - OEDEMA PERIPHERAL [None]
  - PAIN IN EXTREMITY [None]
  - PHLEBOTHROMBOSIS [None]
